FAERS Safety Report 6644897-3 (Version None)
Quarter: 2010Q1

REPORT INFORMATION
  Report Type: 
  Country: None (occurrence: None)
  Receive Date: 20100322
  Receipt Date: 20100309
  Transmission Date: 20100710
  Serious: Yes (Other)
  Sender: FDA-Public Use
  Company Number: PHEH2009US04536

PATIENT
  Sex: Female
  Weight: 66.304 kg

DRUGS (44)
  1. COMBIPATCH [Suspect]
     Dosage: UNK
     Route: 062
     Dates: start: 20040101, end: 20070101
  2. VIVELLE-DOT [Suspect]
  3. WELLBUTRIN [Concomitant]
     Dosage: 150 MG 2 TIMES DAILY
  4. ZOLOFT [Concomitant]
     Dosage: 50 MG
     Dates: start: 20050101
  5. CLIMARA [Concomitant]
  6. PROMETRIUM [Concomitant]
     Dosage: 200 MG
  7. CETAMOL [Concomitant]
     Dosage: 30 MCG
  8. TESTOSTERONE [Concomitant]
     Dosage: 2% GEL APPLIED DAILY
     Dates: start: 20010515
  9. VITA-E [Concomitant]
     Dosage: UNK
  10. NATURAL REMEDIES [Concomitant]
  11. MUCINEX [Concomitant]
  12. TAMOXIFEN CITRATE [Concomitant]
  13. TOPAMAX [Concomitant]
  14. SYNTHROID [Concomitant]
  15. AMBIEN [Concomitant]
  16. BACLOFEN [Concomitant]
  17. EFFEXOR [Concomitant]
  18. VITAMIN A [Concomitant]
  19. CALCIUM [Concomitant]
  20. MULTI-VITAMINS [Concomitant]
  21. FLAXSEED OIL [Concomitant]
  22. BLACK COHOSH [Concomitant]
  23. IBUPROFEN [Concomitant]
  24. VICODIN [Concomitant]
  25. ASPIRIN [Concomitant]
  26. THYROID THERAPY [Concomitant]
  27. GLUCOSAMINE SULFATE [Concomitant]
  28. ACIDOPHILUS ^ZYMA^ [Concomitant]
  29. FLEXERIL [Concomitant]
  30. FLUCONAZOLE [Concomitant]
  31. ZITHROMAX [Concomitant]
  32. HYDROCODONE [Concomitant]
  33. ACYCLOVIR [Concomitant]
  34. METHOCARBAMOL [Concomitant]
  35. BUPROPION HCL [Concomitant]
  36. TRAZODONE HCL [Concomitant]
  37. DOXEPIN HCL [Concomitant]
  38. RELPAX [Concomitant]
  39. KRISTALOSE [Concomitant]
  40. ROZEREM [Concomitant]
  41. AMITRIPTYLINE HCL [Concomitant]
  42. FEMARA [Concomitant]
  43. BABY ASPIRIN [Concomitant]
  44. IMITREX ^CERENEX^ [Concomitant]
     Dosage: UNK

REACTIONS (30)
  - ADENOMA BENIGN [None]
  - BIOPSY [None]
  - BREAST CANCER [None]
  - BREAST CANCER IN SITU [None]
  - BREAST LUMP REMOVAL [None]
  - BREAST PAIN [None]
  - BREAST SWELLING [None]
  - BREAST TENDERNESS [None]
  - COLONOSCOPY [None]
  - COUGH [None]
  - DIZZINESS [None]
  - DYSPNOEA [None]
  - ERYTHEMA [None]
  - FATIGUE [None]
  - HEADACHE [None]
  - HOT FLUSH [None]
  - INJURY [None]
  - INSOMNIA [None]
  - INTERVERTEBRAL DISC DISPLACEMENT [None]
  - LYMPHADENECTOMY [None]
  - NECK PAIN [None]
  - PAIN [None]
  - PHARYNGITIS [None]
  - PLEURISY [None]
  - PRURITUS [None]
  - RADIATION SKIN INJURY [None]
  - RADIOTHERAPY [None]
  - RECTAL HAEMORRHAGE [None]
  - SINUS HEADACHE [None]
  - SPINAL OSTEOARTHRITIS [None]
